FAERS Safety Report 5207957-X (Version None)
Quarter: 2007Q1

REPORT INFORMATION
  Report Type: 
  Country: None (occurrence: None)
  Receive Date: 20070115
  Receipt Date: 20070105
  Transmission Date: 20070707
  Serious: Yes (Hospitalization)
  Sender: FDA-Public Use
  Company Number: US-ELI_LILLY_AND_COMPANY-US200609003218

PATIENT
  Age: 13 Year
  Sex: Male
  Weight: 111.56 kg

DRUGS (1)
  1. ZYPREXA [Suspect]
     Dosage: 10 MG, UNK
     Route: 048
     Dates: start: 20020604, end: 20030422

REACTIONS (4)
  - CARDIAC DISORDER [None]
  - DIABETES MELLITUS [None]
  - GASTRIC DISORDER [None]
  - INTESTINAL FUNCTIONAL DISORDER [None]
